FAERS Safety Report 8936999 (Version 1)
Quarter: 2012Q4

REPORT INFORMATION
  Report Type: 
  Country: JP (occurrence: JP)
  Receive Date: 20121130
  Receipt Date: 20121130
  Transmission Date: 20130627
  Serious: Yes (Hospitalization)
  Sender: FDA-Public Use
  Company Number: JP-009507513-2012SP014403

PATIENT
  Age: 57 Year
  Sex: Female
  Weight: 43 kg

DRUGS (79)
  1. PEGINTERFERON ALFA-2B [Suspect]
     Indication: CHRONIC HEPATITIS C
     Dosage: 1.5 ?g/kg, QW
     Route: 058
     Dates: start: 20120126, end: 20120126
  2. PEGINTERFERON ALFA-2B [Suspect]
     Dosage: 30 ?g, QW
     Route: 058
     Dates: start: 20120202, end: 20120202
  3. PEGINTERFERON ALFA-2B [Suspect]
     Dosage: 50 ?g, QW
     Route: 058
     Dates: start: 20120209, end: 20120209
  4. PEGINTERFERON ALFA-2B [Suspect]
     Dosage: 25 Microgram, qw
     Route: 058
     Dates: start: 20120216
  5. PEGINTERFERON ALFA-2B [Suspect]
     Dosage: 25 ?g, QW
     Route: 058
     Dates: start: 20120308, end: 20120308
  6. PEGINTERFERON ALFA-2B [Suspect]
     Dosage: 50 ?g, QW
     Route: 058
     Dates: start: 20120315, end: 20120315
  7. PEGINTERFERON ALFA-2B [Suspect]
     Dosage: 1.5 Microgram per kilogram,
     Route: 058
     Dates: start: 20120322, end: 20120426
  8. REBETOL [Suspect]
     Indication: CHRONIC HEPATITIS C
     Dosage: Cumulative dose:1800 mg
     Route: 048
     Dates: start: 20120126, end: 20120201
  9. REBETOL [Suspect]
     Dosage: Cumulative dose:1800 mg
     Route: 048
     Dates: start: 20120202, end: 20120307
  10. REBETOL [Suspect]
     Dosage: Cumulative dose:1800 mg
     Route: 048
     Dates: start: 20120308, end: 20120311
  11. REBETOL [Suspect]
     Dosage: Cumulative dose:1800 mg
     Route: 048
     Dates: start: 20120316, end: 20120328
  12. REBETOL [Suspect]
     Dosage: 400 mg, QD
     Route: 048
     Dates: start: 20120329, end: 20120427
  13. TELAVIC [Suspect]
     Indication: CHRONIC HEPATITIS C
     Dosage: Cumulative dose:6750 mg
     Route: 048
     Dates: start: 20120126, end: 20120311
  14. TELAVIC [Suspect]
     Dosage: Cumulative dose:6750mg
     Route: 048
     Dates: start: 20120312, end: 20120419
  15. PREDNISOLONE [Suspect]
     Indication: ADVERSE EVENT
     Dosage: UNK
     Route: 048
     Dates: start: 20120308, end: 20120311
  16. PREDNISOLONE [Suspect]
     Dosage: UNK
     Route: 048
     Dates: start: 20120312, end: 20120314
  17. PREDNISOLONE [Suspect]
     Dosage: UNK
     Route: 048
     Dates: start: 20120315, end: 20120320
  18. PREDNISOLONE [Suspect]
     Dosage: UNK
     Route: 048
     Dates: start: 20120321, end: 20120321
  19. PREDNISOLONE [Suspect]
     Dosage: UNK
     Route: 048
     Dates: start: 20120322, end: 20120324
  20. PREDNISOLONE [Suspect]
     Dosage: UNK
     Route: 048
     Dates: start: 20120326, end: 20120328
  21. PREDNISOLONE [Suspect]
     Dosage: UNK, tid
     Route: 048
     Dates: start: 20120329, end: 20120404
  22. PREDNISOLONE [Suspect]
     Dosage: UNK,tid
     Route: 048
     Dates: start: 20120405, end: 20120406
  23. PREDNISOLONE [Suspect]
     Dosage: UNK, tid
     Route: 048
     Dates: start: 20120407, end: 20120407
  24. PREDNISOLONE [Suspect]
     Dosage: UNK,tid
     Route: 048
     Dates: start: 20120408, end: 20120410
  25. PREDNISOLONE [Suspect]
     Dosage: UNK,tid
     Route: 048
     Dates: start: 20120412, end: 20120418
  26. PREDNISOLONE [Suspect]
     Dosage: UNK,tid
     Route: 048
     Dates: start: 20120419, end: 20120425
  27. PREDNISOLONE [Suspect]
     Dosage: 5 mg, bid
     Route: 048
     Dates: start: 20120426, end: 20120508
  28. PREDNISOLONE [Suspect]
     Dosage: 5 mg, qd
     Dates: start: 20120509, end: 20120515
  29. PREDNISOLONE [Suspect]
     Dosage: 10 mg,qd
     Route: 048
     Dates: start: 20120516, end: 20120516
  30. PREDNISOLONE [Suspect]
     Dosage: 5 mg,qd
     Route: 048
     Dates: start: 20120517, end: 20120521
  31. PROMAC (POLAPREZINC) [Concomitant]
     Dosage: FORMULATION-GRA
     Route: 048
     Dates: start: 20120301, end: 20120307
  32. NAUZELIN [Concomitant]
     Dosage: 10 mg, TID
     Route: 048
     Dates: start: 20120301, end: 20120321
  33. TALION (BEPOTASTINE BESYLATE) [Concomitant]
     Dosage: TALION OD
     Route: 048
     Dates: start: 20120302, end: 20120307
  34. FULMETA [Concomitant]
     Dosage: 5 g, QD
     Route: 061
     Dates: start: 20120302, end: 20120302
  35. ELOCON [Concomitant]
     Dosage: 5 g, QD
     Route: 061
     Dates: start: 20120318, end: 20120318
  36. TAKEPRON [Concomitant]
     Indication: PROPHYLAXIS
     Dosage: 1DF qd
     Route: 048
     Dates: start: 20120308, end: 20120318
  37. TAKEPRON [Concomitant]
     Dosage: 2 DF, qd
     Route: 048
     Dates: start: 20120319, end: 20120321
  38. TAKEPRON [Concomitant]
     Dosage: 1 DF, qd
     Route: 048
     Dates: start: 20120322, end: 20120328
  39. TAKEPRON [Concomitant]
     Dosage: 2 DF, qd
     Route: 048
     Dates: start: 20120329, end: 20120401
  40. TAKEPRON [Concomitant]
     Dosage: 1 DF, qd
     Route: 048
     Dates: start: 20120402, end: 20120425
  41. TAKEPRON [Concomitant]
     Dosage: 1 DF, qd
     Route: 048
     Dates: start: 20120427, end: 20120515
  42. TAKEPRON [Concomitant]
     Dosage: 2 DF, qd
     Route: 048
     Dates: start: 20120516, end: 20120516
  43. TAKEPRON [Concomitant]
     Dosage: 1 DF, qd
     Route: 048
     Dates: start: 20120517, end: 20120612
  44. DERMOVATE [Concomitant]
     Dosage: DOSE UNIT-UNKNOWN
     Route: 061
     Dates: start: 20120308, end: 20120308
  45. DERMOVATE [Concomitant]
     Dosage: 3 DF, qd
     Route: 061
     Dates: start: 20120309, end: 20120309
  46. DERMOVATE [Concomitant]
     Dosage: 4 DF, qd
     Route: 061
     Dates: start: 20120310, end: 20120310
  47. DERMOVATE [Concomitant]
     Dosage: 1 DF, qd
     Route: 061
     Dates: start: 20120314, end: 20120314
  48. DERMOVATE [Concomitant]
     Dosage: 6 DF,qd
     Route: 061
     Dates: start: 20120317, end: 20120317
  49. DERMOVATE [Concomitant]
     Dosage: 6 DF, qd
     Route: 061
     Dates: start: 20120321, end: 20120321
  50. DERMOVATE [Concomitant]
     Dosage: 6 DF, qd
     Route: 061
     Dates: start: 20120424, end: 20120424
  51. DERMOVATE [Concomitant]
     Dosage: 10 DF, qd
     Route: 061
     Dates: start: 20120326, end: 20120326
  52. KINDAVATE [Concomitant]
     Dosage: DOSE UNIT-UNKNOWN
     Route: 061
     Dates: start: 20120308, end: 20120308
  53. KINDAVATE [Concomitant]
     Dosage: 1 UNK, UNK
     Route: 061
     Dates: start: 20120314, end: 20120314
  54. NERISONA [Concomitant]
     Dosage: 1DF, qd
     Route: 051
     Dates: start: 20120308, end: 20120308
  55. NERISONA [Concomitant]
     Dosage: 1 DF, qd
     Route: 051
     Dates: start: 20120311, end: 20120311
  56. NERISONA [Concomitant]
     Dosage: 1 DF, qd
     Route: 051
     Dates: start: 20120314, end: 20120314
  57. KENALOG [Concomitant]
     Dosage: DOSE UNIT-UNKNOWN
     Route: 061
     Dates: start: 20120308, end: 20120308
  58. MYSLEE [Concomitant]
     Indication: INSOMNIA
     Dosage: 5 mg, QD
     Route: 048
     Dates: start: 20120308, end: 20120309
  59. MYSLEE [Concomitant]
     Dosage: 5 mg, qd
     Route: 048
     Dates: start: 20120311, end: 20120404
  60. MYSLEE [Concomitant]
     Dosage: 10 mg, qd
     Route: 048
     Dates: start: 20120405, end: 20120405
  61. MYSLEE [Concomitant]
     Dosage: 5 mg, qd
     Route: 048
     Dates: start: 20120406, end: 20120501
  62. MYSLEE [Concomitant]
     Dosage: 5 mg,qd
     Route: 048
     Dates: start: 20120505, end: 20120511
  63. EKSALB [Concomitant]
     Dosage: DOSE UNIT-UNKNOWN, DRUG FORM-EXT
     Route: 051
     Dates: start: 20120324, end: 20120324
  64. RIVOTRIL [Concomitant]
     Dosage: DRUG FORM-FGR
     Route: 048
     Dates: start: 20120327, end: 20120402
  65. RIVOTRIL [Concomitant]
     Dosage: Formulation:  FGR,Daily dose unknown
     Route: 048
     Dates: start: 20120403, end: 20120411
  66. RIVOTRIL [Concomitant]
     Dosage: Formulation:  FGR,Daily dose unknown
     Route: 048
     Dates: start: 20120412, end: 20120412
  67. RIVOTRIL [Concomitant]
     Dosage: Formulation:  FGR,Daily dose unknown
     Dates: start: 20120413, end: 20120429
  68. ALMARL [Concomitant]
     Dosage: 5 mg,separate number :2
     Route: 048
     Dates: start: 20120413, end: 20120429
  69. CALONAL [Concomitant]
     Dosage: DRUG FORM-FGR
     Route: 048
     Dates: start: 20120419, end: 20120428
  70. LASIX (FUROSEMIDE) [Concomitant]
     Dosage: 20 mg, QD
     Route: 048
     Dates: start: 20120423, end: 20120516
  71. CYMBALTA [Concomitant]
     Dosage: 20 mg, QD
     Route: 048
     Dates: start: 20120427, end: 20120429
  72. [THERAPY UNSPECIFIED] [Concomitant]
     Dosage: 0.25 g, qd
     Route: 065
     Dates: start: 20120308, end: 20120315
  73. [THERAPY UNSPECIFIED] [Concomitant]
     Dosage: 0.5 g, tid
     Route: 065
     Dates: start: 20120419, end: 20120425
  74. [THERAPY UNSPECIFIED] [Concomitant]
     Dosage: 160 g,qd
     Route: 061
     Dates: start: 20120419, end: 20120419
  75. [THERAPY UNSPECIFIED] [Concomitant]
     Dosage: 160 g, qd
     Route: 061
     Dates: start: 20120426, end: 20120426
  76. [THERAPY UNSPECIFIED] [Concomitant]
     Dosage: 100 g, qd
     Route: 061
     Dates: start: 20120509, end: 20120509
  77. [THERAPY UNSPECIFIED] [Concomitant]
     Dosage: 100 g, qd
     Route: 061
     Dates: start: 20120516, end: 20120516
  78. [THERAPY UNSPECIFIED] [Concomitant]
     Dosage: 200 g, qd
     Route: 061
     Dates: start: 20120523, end: 20120523
  79. [THERAPY UNSPECIFIED] [Concomitant]
     Dosage: 400 g, qd
     Route: 061
     Dates: start: 20120606, end: 20120606

REACTIONS (2)
  - Toxic skin eruption [Recovering/Resolving]
  - Toxic skin eruption [Recovered/Resolved]
